FAERS Safety Report 14068619 (Version 1)
Quarter: 2017Q4

REPORT INFORMATION
  Report Type: Spontaneous
  Country: US (occurrence: US)
  Receive Date: 20171010
  Receipt Date: 20171010
  Transmission Date: 20180321
  Serious: Yes (Other)
  Sender: FDA-Public Use
  Company Number: None

PATIENT
  Sex: Male
  Weight: 81 kg

DRUGS (1)
  1. VIVITROL [Suspect]
     Active Substance: NALTREXONE
     Indication: ALCOHOL USE
     Dosage: ?          OTHER FREQUENCY:MONTHLY;?
     Route: 058
     Dates: start: 20161015, end: 20170806

REACTIONS (4)
  - Skin hyperpigmentation [None]
  - Photosensitivity reaction [None]
  - Anxiety [None]
  - Sunburn [None]

NARRATIVE: CASE EVENT DATE: 20170521
